FAERS Safety Report 9231829 (Version 6)
Quarter: 2013Q4

REPORT INFORMATION
  Report Type: Spontaneous
  Country: US (occurrence: US)
  Receive Date: 20130415
  Receipt Date: 20131011
  Transmission Date: 20140711
  Serious: No
  Sender: FDA-Public Use
  Company Number: US-PFIZER INC-2013116839

PATIENT
  Age: 42 Year
  Sex: Female
  Weight: 68.03 kg

DRUGS (5)
  1. LYRICA [Suspect]
     Indication: NEURALGIA
     Dosage: 75 MG, 3X/DAY THREE TIME DAILY
     Route: 048
     Dates: end: 2013
  2. LYRICA [Suspect]
     Indication: ANXIETY
     Dosage: 225 MG, 1X/DAY
  3. LYRICA [Suspect]
     Indication: BACK PAIN
     Dosage: 75 MG, DAILY
  4. MELATONIN [Suspect]
     Indication: SLEEP DISORDER
     Dosage: 1.5 MG, DAILY
     Dates: start: 201308
  5. PAXIL CR [Concomitant]
     Dosage: 25 MG, 1X/DAY

REACTIONS (7)
  - Off label use [Unknown]
  - Intentional drug misuse [Unknown]
  - Emotional disorder [Unknown]
  - Thinking abnormal [Unknown]
  - Drug level decreased [Unknown]
  - Withdrawal syndrome [Unknown]
  - Somnolence [Unknown]
